FAERS Safety Report 7966954-1 (Version None)
Quarter: 2011Q4

REPORT INFORMATION
  Report Type: 
  Country: None (occurrence: None)
  Receive Date: 20111209
  Receipt Date: 20111130
  Transmission Date: 20120403
  Serious: Yes (Other)
  Sender: FDA-Public Use
  Company Number: US-CELGENEUS-163-21880-11120110

PATIENT
  Sex: Male
  Weight: 86.26 kg

DRUGS (18)
  1. CHELATED MIN [Concomitant]
     Route: 065
  2. CYMBALTA [Concomitant]
     Route: 065
  3. MAGNESIUM SULFATE [Concomitant]
     Route: 065
  4. LORAZEPAM [Concomitant]
     Route: 065
  5. SENNA [Concomitant]
     Route: 065
  6. VISION VITAMIN [Concomitant]
     Route: 065
  7. DEXAMETHASONE [Concomitant]
     Route: 065
  8. CETAPHIL [Concomitant]
     Route: 065
  9. OXYCODONE HCL [Concomitant]
     Route: 065
  10. SAW PALMETTO [Concomitant]
     Route: 065
  11. VELCADE [Concomitant]
     Route: 065
  12. ACTIVE Q [Concomitant]
     Route: 065
  13. ACYCLOVIR [Concomitant]
     Route: 065
  14. ZOLPIDEM [Concomitant]
     Route: 065
  15. ZOMETA [Concomitant]
     Route: 065
  16. REVLIMID [Suspect]
     Indication: MULTIPLE MYELOMA
     Dosage: 10 MILLIGRAM
     Route: 048
     Dates: start: 20110627
  17. OMEPRAZOLE [Concomitant]
     Route: 065
  18. OPTIVE EYE [Concomitant]
     Route: 065

REACTIONS (2)
  - DRY EYE [None]
  - DIPLOPIA [None]
